FAERS Safety Report 5882987-3 (Version None)
Quarter: 2008Q3

REPORT INFORMATION
  Report Type: 
  Country: None (occurrence: None)
  Receive Date: 20080913
  Receipt Date: 20080826
  Transmission Date: 20090109
  Serious: No
  Sender: FDA-Public Use
  Company Number: US-ABBOTT-08P-163-0472630-00

PATIENT
  Sex: Female
  Weight: 51.756 kg

DRUGS (2)
  1. HUMIRA [Suspect]
     Indication: CROHN'S DISEASE
     Dates: start: 20080711
  2. HUMIRA [Suspect]
     Route: 058
     Dates: start: 20080808

REACTIONS (2)
  - FUNGAL INFECTION [None]
  - HYPERHIDROSIS [None]
